FAERS Safety Report 24259341 (Version 1)
Quarter: 2024Q3

REPORT INFORMATION
  Report Type: Spontaneous
  Country: RS (occurrence: RS)
  Receive Date: 20240828
  Receipt Date: 20240828
  Transmission Date: 20241016
  Serious: Yes (Hospitalization)
  Sender: TEVA
  Company Number: RS-TEVA-VS-3235992

PATIENT
  Age: 60 Year
  Sex: Male

DRUGS (1)
  1. ERLOTINIB [Suspect]
     Active Substance: ERLOTINIB
     Indication: Skin cancer
     Dosage: DOSAGE: 100MG ONE DAY, 200MG THE NEXT DAY, ALTERNATING
     Route: 048
     Dates: start: 20240702, end: 20240720

REACTIONS (6)
  - Haematochezia [Recovered/Resolved]
  - Diarrhoea [Recovered/Resolved]
  - Candida test positive [Recovered/Resolved]
  - Decreased appetite [Recovered/Resolved]
  - Mucous stools [Recovered/Resolved]
  - Malaise [Recovered/Resolved]

NARRATIVE: CASE EVENT DATE: 20240716
